FAERS Safety Report 8011557-6 (Version None)
Quarter: 2011Q4

REPORT INFORMATION
  Report Type: 
  Country: None (occurrence: None)
  Receive Date: 20111228
  Receipt Date: 20111222
  Transmission Date: 20120403
  Serious: No
  Sender: FDA-Public Use
  Company Number: US-PFIZER INC-2011276299

PATIENT
  Sex: Male
  Weight: 69.841 kg

DRUGS (1)
  1. ADVIL PM [Suspect]
     Indication: JOINT INJURY
     Dosage: 800 MG, 3X/DAY
     Dates: start: 20111110

REACTIONS (4)
  - WRONG DRUG ADMINISTERED [None]
  - SOMNOLENCE [None]
  - DIZZINESS [None]
  - FATIGUE [None]
